FAERS Safety Report 9386643 (Version 2)
Quarter: 2013Q3

REPORT INFORMATION
  Report Type: Spontaneous
  Country: AU (occurrence: AU)
  Receive Date: 20130708
  Receipt Date: 20130711
  Transmission Date: 20140515
  Serious: Yes (Death, Hospitalization, Other)
  Sender: FDA-Public Use
  Company Number: PHHY2013AU071199

PATIENT
  Sex: Male

DRUGS (5)
  1. ZOLEDRONATE [Suspect]
     Dosage: UNK
     Dates: start: 20051108
  2. LUCRIN [Suspect]
     Dosage: 22.5 MG, UNK
     Dates: start: 20051108
  3. ASPIRIN [Concomitant]
     Indication: MYOCARDIAL ISCHAEMIA
     Dosage: UNK
  4. CELECOXIB [Concomitant]
     Indication: OSTEOARTHRITIS
     Dosage: UNK
  5. SALBUTAMOL [Concomitant]
     Indication: ASTHMA
     Dosage: UNK UKN, UNK

REACTIONS (10)
  - Ascites [Fatal]
  - Bacterial infection [Fatal]
  - Biliary sepsis [Fatal]
  - Cholelithiasis [Fatal]
  - Hepatic encephalopathy [Fatal]
  - Hepatic mass [Fatal]
  - Respiratory failure [Fatal]
  - Sinus tachycardia [Fatal]
  - Jaundice [Fatal]
  - Pyrexia [Fatal]
